FAERS Safety Report 4429847-2 (Version None)
Quarter: 2004Q3

REPORT INFORMATION
  Report Type: 
  Country: None (occurrence: None)
  Receive Date: 20040820
  Receipt Date: 20040722
  Transmission Date: 20050211
  Serious: Yes (Congenital Anomaly)
  Sender: FDA-Public Use
  Company Number: 200412356EU

PATIENT
  Sex: Female
  Weight: 2.88 kg

DRUGS (2)
  1. LOVENOX [Suspect]
     Indication: DRUG EXPOSURE DURING PREGNANCY
     Route: 064
     Dates: start: 20010401, end: 20010801
  2. ASPIRIN [Concomitant]
     Route: 048

REACTIONS (3)
  - CAESAREAN SECTION [None]
  - CONGENITAL SMALL INTESTINAL ATRESIA [None]
  - DRUG EXPOSURE DURING PREGNANCY [None]
